FAERS Safety Report 23265397 (Version 1)
Quarter: 2023Q4

REPORT INFORMATION
  Report Type: Spontaneous
  Country: GB (occurrence: GB)
  Receive Date: 20231206
  Receipt Date: 20231206
  Transmission Date: 20240109
  Serious: Yes (Other)
  Sender: FDA-Public Use
  Company Number: GB-SA-SAC20231130000174

PATIENT
  Sex: Female
  Weight: 78.9 kg

DRUGS (2)
  1. AUBAGIO [Suspect]
     Active Substance: TERIFLUNOMIDE
     Indication: Multiple sclerosis
     Dosage: 14 MG, QD
     Route: 048
  2. MAVENCLAD [Concomitant]
     Active Substance: CLADRIBINE
     Dosage: UNK

REACTIONS (1)
  - Pulmonary embolism [Unknown]
